FAERS Safety Report 7602804-0 (Version None)
Quarter: 2011Q3

REPORT INFORMATION
  Report Type: 
  Country: None (occurrence: None)
  Receive Date: 20110701
  Receipt Date: 20110616
  Transmission Date: 20111222
  Serious: Yes (Hospitalization, Other)
  Sender: FDA-Public Use
  Company Number: AUR-APL-2011-02829

PATIENT
  Age: 50 Year
  Sex: Female

DRUGS (2)
  1. AMLODIPINE [Suspect]
     Indication: PRODUCT USED FOR UNKNOWN INDICATION
     Dosage: (770 MG, TOTAL) , ORAL
     Route: 048
  2. LOSARTAN POTASSIUM [Suspect]
     Indication: PRODUCT USED FOR UNKNOWN INDICATION
     Dosage: (16640 MG, TOTAL), ORAL
     Route: 048

REACTIONS (9)
  - BLOOD GLUCOSE INCREASED [None]
  - ANURIA [None]
  - PULMONARY OEDEMA [None]
  - MULTIPLE DRUG OVERDOSE [None]
  - METABOLIC ACIDOSIS [None]
  - HYPERKALAEMIA [None]
  - HYPOTENSION [None]
  - RENAL IMPAIRMENT [None]
  - NO THERAPEUTIC RESPONSE [None]
